FAERS Safety Report 21891845 (Version 1)
Quarter: 2023Q1

REPORT INFORMATION
  Report Type: Spontaneous
  Country: US (occurrence: None)
  Receive Date: 20230120
  Receipt Date: 20230120
  Transmission Date: 20230417
  Serious: Yes (unspecified)
  Sender: FDA-Public Use
  Company Number: None

PATIENT
  Age: 24 Year
  Sex: Female
  Weight: 69.75 kg

DRUGS (1)
  1. DUPIXENT [Suspect]
     Active Substance: DUPILUMAB
     Indication: Eczema
     Dosage: OTHER QUANTITY : 1 INJECTION(S);?OTHER FREQUENCY : Q 2 WEEKS;?OTHER ROUTE : SUB QU;?
     Route: 050
     Dates: end: 20221101

REACTIONS (2)
  - Dry eye [None]
  - Corneal scar [None]

NARRATIVE: CASE EVENT DATE: 20220831
